FAERS Safety Report 4726258-7 (Version None)
Quarter: 2005Q3

REPORT INFORMATION
  Report Type: 
  Country: None (occurrence: None)
  Receive Date: 20050725
  Receipt Date: 20050712
  Transmission Date: 20060218
  Serious: Yes (Hospitalization)
  Sender: FDA-Public Use
  Company Number: HQWYE559520JUN05

PATIENT
  Age: 36 Year
  Sex: Female

DRUGS (4)
  1. RAPAMUN                                          (SIROLIMUS) [Suspect]
     Indication: PROPHYLAXIS AGAINST TRANSPLANT REJECTION
     Route: 048
     Dates: end: 20050612
  2. ZENAPAX [Concomitant]
  3. MYCOPHENOLATE MOFETIL           (MYCOPHENOLATE MOFETIL) [Concomitant]
  4. CORTICOSTEROID NOS                (CORTICOSTEROID NOS) [Concomitant]

REACTIONS (4)
  - DRUG INEFFECTIVE [None]
  - INJECTION SITE REACTION [None]
  - KIDNEY TRANSPLANT REJECTION [None]
  - PHLEBITIS [None]
